FAERS Safety Report 7434581-0 (Version None)
Quarter: 2011Q2

REPORT INFORMATION
  Report Type: 
  Country: None (occurrence: None)
  Receive Date: 20110425
  Receipt Date: 20110419
  Transmission Date: 20111010
  Serious: No
  Sender: FDA-Public Use
  Company Number: US-B.I. PHARMACEUTICALS,INC./RIDGEFIELD-2011-BP-07075BP

PATIENT
  Sex: Female

DRUGS (3)
  1. PRADAXA [Suspect]
     Indication: ANTICOAGULANT THERAPY
  2. LOW THYROID MEDICATION [Suspect]
     Indication: HYPOTHYROIDISM
  3. PRADAXA [Suspect]
     Indication: ATRIAL FIBRILLATION
     Dates: start: 20101201

REACTIONS (2)
  - PRURITUS [None]
  - ALOPECIA [None]
